FAERS Safety Report 10238558 (Version 1)
Quarter: 2014Q2

REPORT INFORMATION
  Report Type: Spontaneous
  Country: US (occurrence: US)
  Receive Date: 20140616
  Receipt Date: 20140616
  Transmission Date: 20141212
  Serious: Yes (Other)
  Sender: FDA-Public Use
  Company Number: US-PFIZER INC-2014160980

PATIENT
  Age: 76 Year
  Sex: Female
  Weight: 90.7 kg

DRUGS (7)
  1. GLIPIZIDE [Suspect]
     Dosage: UNK
  2. NORVASC [Concomitant]
     Dosage: UNK
  3. DIAZEPAM [Concomitant]
     Dosage: 5 MG, UNK
  4. LISINOPRIL [Concomitant]
     Dosage: UNK
  5. METFORMIN [Concomitant]
     Dosage: UNK
  6. INSULIN [Concomitant]
     Dosage: UNK
  7. ASPIRIN [Concomitant]
     Dosage: UNK, (IN MORNING)

REACTIONS (9)
  - Kidney infection [Unknown]
  - Fungal infection [Unknown]
  - Cystitis [Unknown]
  - Dysuria [Unknown]
  - Vulvovaginal rash [Unknown]
  - Vulvovaginal pain [Unknown]
  - Sensory loss [Unknown]
  - Pain [Unknown]
  - Blood glucose increased [Unknown]
